FAERS Safety Report 17351087 (Version 1)
Quarter: 2020Q1

REPORT INFORMATION
  Report Type: Spontaneous
  Country: ES (occurrence: ES)
  Receive Date: 20200130
  Receipt Date: 20200130
  Transmission Date: 20200409
  Serious: Yes (Hospitalization)
  Sender: FDA-Public Use
  Company Number: ES-MYLANLABS-2020M1010735

PATIENT
  Age: 51 Year
  Sex: Male

DRUGS (3)
  1. EVEROLIMUS. [Suspect]
     Active Substance: EVEROLIMUS
     Indication: RENAL TRANSPLANT
     Dosage: 1 MG, Q12H (1MG/12HORAS ENTRE EL 28/10/18 Y EL 31/10/18; 1,5MG/12H DEL 31/10/18 AL 3/11/18)
     Route: 048
     Dates: start: 20181028, end: 20181031
  2. TACROLIMUS. [Suspect]
     Active Substance: TACROLIMUS
     Indication: RENAL TRANSPLANT
     Dosage: 10 MG, Q24H (10MG/24 HORAS)
     Route: 048
     Dates: start: 20181028, end: 20181102
  3. EVEROLIMUS. [Suspect]
     Active Substance: EVEROLIMUS
     Dosage: 1.5 MG, Q12H
     Route: 048
     Dates: start: 20181101, end: 20181103

REACTIONS (1)
  - Hepatitis [Recovered/Resolved]

NARRATIVE: CASE EVENT DATE: 20181102
